FAERS Safety Report 18430202 (Version 1)
Quarter: 2020Q4

REPORT INFORMATION
  Report Type: Spontaneous
  Country: US (occurrence: US)
  Receive Date: 20201027
  Receipt Date: 20201027
  Transmission Date: 20210114
  Serious: No
  Sender: FDA-Public Use
  Company Number: US-TEVA-2020-US-1840513

PATIENT
  Age: 24 Year
  Sex: Male
  Weight: 58.51 kg

DRUGS (6)
  1. FLUOXETINE [Concomitant]
     Active Substance: FLUOXETINE HYDROCHLORIDE
  2. PROPRANOLOL 20 MG [Concomitant]
     Active Substance: PROPRANOLOL HYDROCHLORIDE
  3. BENZTROPINE 0.5 MG [Concomitant]
  4. DIVALPROEX 125 MG [Concomitant]
     Dosage: 8 DOSAGE FORMS DAILY;
  5. AUSTEDO [Suspect]
     Active Substance: DEUTETRABENAZINE
     Indication: INTENTIONAL SELF-INJURY
     Dosage: 18 MILLIGRAM DAILY;
     Route: 065
  6. AUSTEDO [Suspect]
     Active Substance: DEUTETRABENAZINE
     Route: 065
     Dates: end: 20201014

REACTIONS (6)
  - Ear injury [Unknown]
  - Product use in unapproved indication [Unknown]
  - Eye movement disorder [Unknown]
  - Scratch [Unknown]
  - Eye disorder [Unknown]
  - Hypokinesia [Unknown]
